FAERS Safety Report 21178968 (Version 1)
Quarter: 2022Q3

REPORT INFORMATION
  Report Type: Spontaneous
  Country: CO (occurrence: CO)
  Receive Date: 20220805
  Receipt Date: 20220805
  Transmission Date: 20221027
  Serious: Yes (Hospitalization, Other)
  Sender: FDA-Public Use
  Company Number: CO-AMGEN-COLSP2021151108

PATIENT
  Age: 65 Year
  Sex: Female
  Weight: 44 kg

DRUGS (6)
  1. MVASI [Suspect]
     Active Substance: BEVACIZUMAB-AWWB
     Indication: Ovarian cancer
     Dosage: 627 MILLIGRAM, QD
     Route: 042
     Dates: start: 20210824
  2. DEXAMETHASONE PHOSPHATE [Concomitant]
     Active Substance: DEXAMETHASONE PHOSPHATE
     Indication: Ovarian cancer
     Dosage: 16 MILLIGRAM, QD
     Route: 042
     Dates: start: 20210824
  3. FOSAPREPITANT [Concomitant]
     Active Substance: FOSAPREPITANT
     Indication: Ovarian cancer
     Dosage: 150 MILLIGRAM, QD
     Route: 042
     Dates: start: 20210824
  4. PACLITAXEL [Concomitant]
     Active Substance: PACLITAXEL
     Indication: Ovarian cancer
     Dosage: 253.75 MILLIGRAM, QD
     Route: 042
     Dates: start: 20210824
  5. CARBOPLATIN [Concomitant]
     Active Substance: CARBOPLATIN
     Indication: Ovarian cancer
     Dosage: 466.75 MILLIGRAM, QD
     Route: 042
     Dates: start: 20210824
  6. DIPHENHYDRAMINE HYDROCHLORIDE [Concomitant]
     Active Substance: DIPHENHYDRAMINE HYDROCHLORIDE
     Indication: Ovarian cancer
     Dosage: 10 MILLIGRAM, QD
     Route: 042
     Dates: start: 20210824

REACTIONS (5)
  - Intestinal obstruction [Recovering/Resolving]
  - Abdominal rigidity [Recovered/Resolved]
  - Nausea [Recovered/Resolved]
  - Vomiting [Recovered/Resolved]
  - Diarrhoea [Recovered/Resolved]

NARRATIVE: CASE EVENT DATE: 20210922
